FAERS Safety Report 17854932 (Version 1)
Quarter: 2020Q2

REPORT INFORMATION
  Report Type: Spontaneous
  Country: US (occurrence: US)
  Receive Date: 20200603
  Receipt Date: 20200603
  Transmission Date: 20200714
  Serious: No
  Sender: FDA-Public Use
  Company Number: US-PFIZER INC-2020216332

PATIENT
  Age: 71 Year
  Sex: Male
  Weight: 90.72 kg

DRUGS (2)
  1. VIAGRA [Suspect]
     Active Substance: SILDENAFIL CITRATE
     Dosage: 50 MG
  2. FISH OIL [Concomitant]
     Active Substance: FISH OIL
     Dosage: 4 DF, DAILY (FOUR CAPSULES A DAY)

REACTIONS (4)
  - Suspected counterfeit product [Unknown]
  - Counterfeit product administered [Unknown]
  - Prescription drug used without a prescription [Unknown]
  - Headache [Unknown]
